FAERS Safety Report 16793458 (Version 3)
Quarter: 2019Q4

REPORT INFORMATION
  Report Type: Spontaneous
  Country: JP (occurrence: JP)
  Receive Date: 20190911
  Receipt Date: 20191121
  Transmission Date: 20200122
  Serious: Yes (Death, Hospitalization, Other)
  Sender: FDA-Public Use
  Company Number: JP-009507513-1909JPN000592J

PATIENT
  Age: 61 Year
  Sex: Female
  Weight: 36 kg

DRUGS (16)
  1. PREDONINE [Suspect]
     Active Substance: PREDNISOLONE
     Dosage: 10 MILLIGRAM, QD
     Route: 042
     Dates: start: 20190707, end: 20190710
  2. ABRAXANE [Suspect]
     Active Substance: PACLITAXEL
     Indication: NON-SMALL CELL LUNG CANCER
     Dosage: 134 MILLIGRAM, Q3W
     Route: 042
     Dates: start: 20190606, end: 20190703
  3. TAKECAB [Concomitant]
     Active Substance: VONOPRAZAN FUMURATE
     Dosage: 10 MILLIGRAM, QD
     Route: 048
     Dates: start: 20190601, end: 20190828
  4. CARBOPLATIN. [Suspect]
     Active Substance: CARBOPLATIN
     Indication: NON-SMALL CELL LUNG CANCER
     Dosage: 770 MILLIGRAM, Q3W
     Route: 042
     Dates: start: 20190606, end: 20190703
  5. PREDONINE [Suspect]
     Active Substance: PREDNISOLONE
     Dosage: 20 MILLIGRAM, QD
     Route: 042
     Dates: start: 20190703, end: 20190706
  6. METOCLOPRAMIDE. [Concomitant]
     Active Substance: METOCLOPRAMIDE
     Indication: NAUSEA
     Dosage: 5 MILLIGRAM, TID
     Route: 048
     Dates: start: 20190531, end: 20190828
  7. EMEND [Concomitant]
     Active Substance: APREPITANT
     Indication: PROPHYLAXIS
     Dosage: 125 MILLIGRAM, QD
     Route: 048
     Dates: start: 20190606, end: 20190606
  8. LOXOPROFEN [Concomitant]
     Active Substance: LOXOPROFEN
     Indication: CANCER PAIN
     Dosage: 60 MILLIGRAM, TID
     Route: 048
     Dates: start: 20190610, end: 20190828
  9. PREDONINE [Suspect]
     Active Substance: PREDNISOLONE
     Dosage: 5 MILLIGRAM, QD
     Route: 048
     Dates: start: 20190711, end: 20190828
  10. CALONAL [Concomitant]
     Active Substance: ACETAMINOPHEN
     Indication: CANCER PAIN
     Dosage: 400 MILLIGRAM, TID
     Route: 048
     Dates: start: 20190606, end: 20190610
  11. DECADRON [Concomitant]
     Active Substance: DEXAMETHASONE
     Indication: PROPHYLAXIS
     Dosage: 4 MILLIGRAM, QD
     Route: 048
     Dates: start: 20190607, end: 20190609
  12. KEYTRUDA [Suspect]
     Active Substance: PEMBROLIZUMAB
     Indication: NON-SMALL CELL LUNG CANCER
     Dosage: 200 MILLIGRAM, Q3W
     Route: 041
     Dates: start: 20190606, end: 20190703
  13. PREDONINE [Suspect]
     Active Substance: PREDNISOLONE
     Indication: TUMOUR PSEUDOPROGRESSION
     Dosage: 30 MILLIGRAM, QD
     Route: 042
     Dates: start: 20190626, end: 20190702
  14. EMEND [Concomitant]
     Active Substance: APREPITANT
     Indication: PROPHYLAXIS
     Dosage: 80 MILLIGRAM, QD
     Route: 048
     Dates: start: 20190607, end: 20190608
  15. NOVAMIN (PROCHLORPERAZINE MALEATE) [Concomitant]
     Active Substance: PROCHLORPERAZINE MALEATE
     Indication: NAUSEA
     Dosage: 5 MILLIGRAM, TID
     Route: 048
     Dates: start: 20190609, end: 20190828
  16. ZOLPIDEM TARTRATE. [Concomitant]
     Active Substance: ZOLPIDEM TARTRATE
     Indication: INSOMNIA
     Dosage: 5 MILLIGRAM, QD
     Route: 048
     Dates: start: 20190609, end: 20190828

REACTIONS (9)
  - Haemoptysis [Fatal]
  - Obstructive airways disorder [Fatal]
  - Endocarditis [Unknown]
  - Diarrhoea [Unknown]
  - Bacteraemia [Recovering/Resolving]
  - Pyrexia [Recovered/Resolved]
  - Dyspnoea [Unknown]
  - Tumour pseudoprogression [Unknown]
  - Off label use [Unknown]

NARRATIVE: CASE EVENT DATE: 20190613
